FAERS Safety Report 21026879 (Version 1)
Quarter: 2022Q2

REPORT INFORMATION
  Report Type: Spontaneous
  Country: BE (occurrence: BE)
  Receive Date: 20220630
  Receipt Date: 20220630
  Transmission Date: 20220720
  Serious: Yes (Disabling)
  Sender: FDA-Public Use
  Company Number: None

PATIENT
  Age: 68 Year
  Sex: Female
  Weight: 85 kg

DRUGS (1)
  1. ENOXAPARIN SODIUM [Suspect]
     Active Substance: ENOXAPARIN SODIUM
     Indication: Surgery
     Dosage: UNK UNK, QD,ONCE A DAY. ADMINISTRATION IS DONE IN THE YEAR 2021 AND YEAR 2022 UNTIL MARCH 2022. NO
     Route: 003
     Dates: start: 2021, end: 202203

REACTIONS (2)
  - Constipation [Not Recovered/Not Resolved]
  - Nodule [Not Recovered/Not Resolved]
